FAERS Safety Report 5401233-8 (Version None)
Quarter: 2007Q3

REPORT INFORMATION
  Report Type: 
  Country: None (occurrence: None)
  Receive Date: 20070726
  Receipt Date: 20070717
  Transmission Date: 20080115
  Serious: Yes (Hospitalization)
  Sender: FDA-Public Use
  Company Number: 20073951

PATIENT
  Sex: Male

DRUGS (1)
  1. LIORESAL [Suspect]
     Indication: MUSCLE SPASTICITY
     Dosage: 375 MCG, DAILY, INTRATHECAL
     Route: 037

REACTIONS (7)
  - BLOOD PRESSURE INCREASED [None]
  - DEVICE FAILURE [None]
  - INCORRECT DOSE ADMINISTERED [None]
  - MUSCLE RIGIDITY [None]
  - RESPIRATION ABNORMAL [None]
  - SEPSIS [None]
  - TACHYCARDIA [None]
